FAERS Safety Report 4965134-1 (Version None)
Quarter: 2006Q1

REPORT INFORMATION
  Report Type: 
  Country: None (occurrence: None)
  Receive Date: 20060201
  Receipt Date: 20051011
  Transmission Date: 20060701
  Serious: No
  Sender: FDA-Public Use
  Company Number: 2005PV003119

PATIENT
  Age: 59 Year
  Sex: Female
  Weight: 112.9457 kg

DRUGS (5)
  1. BYETTA [Suspect]
     Indication: DIABETES MELLITUS NON-INSULIN-DEPENDENT
     Dosage: 5 MCG;BID;SC
     Route: 058
     Dates: start: 20050901, end: 20051007
  2. LANTUS [Concomitant]
  3. ACTOS [Concomitant]
  4. AVANDIA [Concomitant]
  5. .. [Concomitant]

REACTIONS (5)
  - ANGER [None]
  - BLOOD GLUCOSE [None]
  - BLOOD GLUCOSE DECREASED [None]
  - IRRITABILITY [None]
  - NAUSEA [None]
